FAERS Safety Report 18012936 (Version 1)
Quarter: 2020Q3

REPORT INFORMATION
  Report Type: Report from Study
  Country: CA (occurrence: CA)
  Receive Date: 20200713
  Receipt Date: 20200713
  Transmission Date: 20201103
  Serious: Yes (Hospitalization, Disabling, Other)
  Sender: FDA-Public Use
  Company Number: CA-ACCORD-189546

PATIENT
  Age: 62 Year
  Sex: Male

DRUGS (10)
  1. PANTOPRAZOLE [Concomitant]
     Active Substance: PANTOPRAZOLE
  2. PSORALEN [Concomitant]
     Active Substance: PSORALEN
  3. IRBESARTAN. [Concomitant]
     Active Substance: IRBESARTAN
  4. ACITRETIN. [Concomitant]
     Active Substance: ACITRETIN
  5. CLOPIDOGREL [Concomitant]
     Active Substance: CLOPIDOGREL BISULFATE
  6. LIPITOR [Concomitant]
     Active Substance: ATORVASTATIN CALCIUM
  7. METHOTREXATE. [Suspect]
     Active Substance: METHOTREXATE
     Indication: PRODUCT USED FOR UNKNOWN INDICATION
  8. ACETYLSALICYLIC ACID [Concomitant]
     Active Substance: ASPIRIN
  9. LYRICA [Concomitant]
     Active Substance: PREGABALIN
  10. COSENTYX [Suspect]
     Active Substance: SECUKINUMAB
     Indication: PSORIASIS
     Dosage: 1 EVERY 1 MONTHS
     Route: 058

REACTIONS (14)
  - Psoriasis [Recovered/Resolved]
  - Inappropriate schedule of product administration [Unknown]
  - Dyspnoea [Recovered/Resolved]
  - Pneumonia [Recovered/Resolved]
  - Brain neoplasm malignant [Recovered/Resolved]
  - Chronic obstructive pulmonary disease [Recovered/Resolved]
  - Pulmonary oedema [Recovered/Resolved]
  - Cerebrovascular accident [Recovered/Resolved]
  - Lung neoplasm malignant [Recovered/Resolved]
  - Movement disorder [Recovered/Resolved]
  - Aphasia [Recovered/Resolved]
  - Heart rate irregular [Recovered/Resolved]
  - Cardiac disorder [Recovered/Resolved]
  - Pulmonary mass [Recovered/Resolved]
